FAERS Safety Report 5517565-9 (Version None)
Quarter: 2007Q4

REPORT INFORMATION
  Report Type: 
  Country: None (occurrence: None)
  Receive Date: 20071114
  Receipt Date: 20071102
  Transmission Date: 20080405
  Serious: No
  Sender: FDA-Public Use
  Company Number: US-SHR-US-2007-039787

PATIENT
  Age: 41 Year
  Sex: Female

DRUGS (5)
  1. BETASERON [Suspect]
     Indication: RELAPSING-REMITTING MULTIPLE SCLEROSIS
     Route: 058
     Dates: start: 19950101, end: 20070924
  2. NEURONTIN [Concomitant]
     Dosage: 600 MG, 3X/DAY
     Route: 048
  3. PROVIGIL [Concomitant]
     Dosage: 200 MG, 2X/DAY
  4. OXYCONTIN [Concomitant]
     Dosage: 80 MG, 2X/DAY
  5. BONIVA [Concomitant]
     Dosage: 150 MG, 1X/MONTH
     Route: 048

REACTIONS (1)
  - NO ADVERSE EVENT [None]
